FAERS Safety Report 13657980 (Version 1)
Quarter: 2017Q2

REPORT INFORMATION
  Report Type: Report from Study
  Country: US (occurrence: US)
  Receive Date: 20170616
  Receipt Date: 20170616
  Transmission Date: 20170830
  Serious: Yes (Death)
  Sender: FDA-Public Use
  Company Number: US-TORRENT-00002959

PATIENT
  Age: 29 Year
  Sex: Male

DRUGS (4)
  1. HEROIN [Suspect]
     Active Substance: DIAMORPHINE
  2. CITALOPRAM [Suspect]
     Active Substance: CITALOPRAM HYDROBROMIDE
  3. AMFETAMINE SULFATE [Suspect]
     Active Substance: AMPHETAMINE SULFATE
  4. FENTANYL. [Suspect]
     Active Substance: FENTANYL

REACTIONS (3)
  - Cardio-respiratory arrest [Fatal]
  - Drug use disorder [Fatal]
  - Toxicity to various agents [Fatal]
